FAERS Safety Report 5086641-X (Version None)
Quarter: 2006Q3

REPORT INFORMATION
  Report Type: 
  Country: None (occurrence: None)
  Receive Date: 20060823
  Receipt Date: 20060811
  Transmission Date: 20061208
  Serious: Yes (Hospitalization)
  Sender: FDA-Public Use
  Company Number: GB-BRISTOL-MYERS SQUIBB COMPANY-13480348

PATIENT
  Age: 77 Year
  Sex: Male

DRUGS (14)
  1. METFORMIN HYDROCHLORIDE [Suspect]
     Indication: DIABETES MELLITUS NON-INSULIN-DEPENDENT
     Route: 048
     Dates: end: 20060619
  2. ALLOPURINOL [Concomitant]
     Route: 048
  3. ASPIRIN [Concomitant]
     Route: 048
  4. BENDROFLUMETHIAZIDE [Concomitant]
     Route: 048
     Dates: start: 20060614
  5. DIGITOXIN [Concomitant]
     Route: 048
     Dates: start: 20060618, end: 20060620
  6. DIPYRIDAMOLE [Concomitant]
     Route: 048
  7. FUROSEMIDE [Concomitant]
     Route: 048
     Dates: start: 20060613, end: 20060614
  8. GLIMEPIRIDE [Concomitant]
     Route: 048
  9. HALOPERIDOL [Concomitant]
     Route: 048
  10. LANSOPRAZOLE [Concomitant]
     Route: 048
  11. LISINOPRIL [Concomitant]
     Route: 048
     Dates: start: 20060617, end: 20060620
  12. ROSIGLITAZONE [Concomitant]
     Route: 048
  13. SIMVASTATIN [Concomitant]
     Route: 048
  14. TIMOLOL MALEATE [Concomitant]
     Route: 047

REACTIONS (2)
  - LACTIC ACIDOSIS [None]
  - RENAL FAILURE ACUTE [None]
